FAERS Safety Report 5555219-3 (Version None)
Quarter: 2007Q4

REPORT INFORMATION
  Report Type: 
  Country: None (occurrence: None)
  Receive Date: 20071213
  Receipt Date: 20070814
  Transmission Date: 20080405
  Serious: No
  Sender: FDA-Public Use
  Company Number: US-AMGEN-KDL238742

PATIENT
  Sex: Female

DRUGS (4)
  1. ENBREL [Suspect]
     Indication: SPONDYLOARTHROPATHY
     Dates: start: 20050101
  2. AZULFIDINE EN-TABS [Concomitant]
     Dates: start: 20050101, end: 20070801
  3. METHOTREXATE [Concomitant]
  4. KENALOG [Concomitant]

REACTIONS (2)
  - ARTHRALGIA [None]
  - URTICARIA [None]
